FAERS Safety Report 5863961-X (Version None)
Quarter: 2008Q3

REPORT INFORMATION
  Report Type: 
  Country: None (occurrence: None)
  Receive Date: 20080829
  Receipt Date: 20080821
  Transmission Date: 20090109
  Serious: Yes (Other)
  Sender: FDA-Public Use
  Company Number: PHBS2008DE05516

PATIENT
  Age: 66 Year
  Sex: Female

DRUGS (1)
  1. METOPROLOL TARTRATE [Suspect]
     Indication: HYPERTENSION
     Dosage: 50 MG/DAY

REACTIONS (4)
  - NIGHTMARE [None]
  - PARASOMNIA [None]
  - SLEEP TALKING [None]
  - SOMNAMBULISM [None]
